FAERS Safety Report 16765636 (Version 1)
Quarter: 2019Q3

REPORT INFORMATION
  Report Type: Not Available
  Country: US (occurrence: US)
  Receive Date: 20190903
  Receipt Date: 20190903
  Transmission Date: 20191005
  Serious: No
  Sender: FDA-Public Use
  Company Number: US-NEUROCRINE BIOSCIENCES INC.-2019NBI02482

PATIENT
  Age: 63 Year
  Sex: Female

DRUGS (5)
  1. INGREZZA [Suspect]
     Active Substance: VALBENAZINE
     Indication: TARDIVE DYSKINESIA
     Route: 048
     Dates: start: 20190419, end: 2019
  2. KLONOPIN [Concomitant]
     Active Substance: CLONAZEPAM
  3. LITHIUM. [Concomitant]
     Active Substance: LITHIUM
  4. VALTREX [Concomitant]
     Active Substance: VALACYCLOVIR HYDROCHLORIDE
  5. FOLIC ACID. [Concomitant]
     Active Substance: FOLIC ACID

REACTIONS (3)
  - Anxiety [Unknown]
  - Dry mouth [Unknown]
  - Constipation [Unknown]

NARRATIVE: CASE EVENT DATE: 2019
